FAERS Safety Report 6790841-8 (Version None)
Quarter: 2010Q2

REPORT INFORMATION
  Report Type: 
  Country: None (occurrence: None)
  Receive Date: 20100624
  Receipt Date: 20100616
  Transmission Date: 20101027
  Serious: Yes (Death)
  Sender: FDA-Public Use
  Company Number: A0864179A

PATIENT
  Sex: Male

DRUGS (4)
  1. CELSENTRI [Suspect]
     Indication: HIV INFECTION
     Dosage: 600MG PER DAY
     Route: 048
     Dates: start: 20090312, end: 20100324
  2. TENOFOVIR [Concomitant]
     Indication: HIV INFECTION
     Dates: start: 20090312
  3. AZT [Concomitant]
     Indication: HIV INFECTION
     Dates: start: 20090312
  4. LAMIVUDINE-HIV [Concomitant]
     Indication: HIV INFECTION
     Dates: start: 20090312

REACTIONS (3)
  - BACK PAIN [None]
  - RETROPERITONEAL NEOPLASM [None]
  - WEIGHT INCREASED [None]
